FAERS Safety Report 5055240-8 (Version None)
Quarter: 2006Q3

REPORT INFORMATION
  Report Type: 
  Country: None (occurrence: None)
  Receive Date: 20060714
  Receipt Date: 20060703
  Transmission Date: 20061208
  Serious: Yes (Other)
  Sender: FDA-Public Use
  Company Number: 2006079521

PATIENT
  Age: 74 Year
  Sex: Male
  Weight: 65 kg

DRUGS (6)
  1. CLINDAMYCIN HCL [Suspect]
     Indication: INFECTION PROPHYLAXIS
     Dosage: 1200 MG (300 MG, 4 IN 1 D), ORAL
     Route: 048
     Dates: start: 20060504, end: 20060505
  2. EFFOX LONG                 (ISOSORBIDE MONONITRATE) [Concomitant]
  3. MOLSIDOMINE [Concomitant]
  4. SIMVACARD                   (SIMVASTATIN) [Concomitant]
  5. APO-PENTOXIFYLLINE [Concomitant]
  6. LUCETAM (PIRACETAM) [Concomitant]

REACTIONS (2)
  - GASTROINTESTINAL DISORDER [None]
  - URINARY RETENTION [None]
